FAERS Safety Report 8593698-8 (Version None)
Quarter: 2012Q3

REPORT INFORMATION
  Report Type: 
  Country: None (occurrence: None)
  Receive Date: 20120814
  Receipt Date: 20120803
  Transmission Date: 20120928
  Serious: Yes (Other)
  Sender: FDA-Public Use
  Company Number: JP-JHP PHARMACEUTICALS, LLC-JHP201200396

PATIENT
  Age: 67 Year
  Sex: Female
  Weight: 47 kg

DRUGS (13)
  1. BENIDIPINE [Concomitant]
     Indication: ESSENTIAL HYPERTENSION
  2. KETALAR [Suspect]
     Indication: INDUCTION OF ANAESTHESIA
     Dosage: 50 MG, UNK
  3. REMIFENTANIL [Suspect]
     Indication: GENERAL ANAESTHESIA
  4. ROCURONIUM BROMIDE [Concomitant]
     Indication: MUSCLE RELAXANT THERAPY
     Dosage: 30 MG, UNK
  5. PROPOFOL [Suspect]
     Indication: INDUCTION OF ANAESTHESIA
     Dosage: 50 MG, UNK
  6. FENTANYL [Suspect]
     Indication: INDUCTION OF ANAESTHESIA
     Dosage: 0.1 MG, UNK
     Route: 042
  7. SEVOFLURANE [Suspect]
     Indication: GENERAL ANAESTHESIA
     Dosage: 0.15 ?G/KG, HR
  8. CIPRALAN [Concomitant]
     Indication: ATRIAL FIBRILLATION
  9. WARFARIN SODIUM [Concomitant]
     Indication: ATRIAL FIBRILLATION
  10. KETALAR [Suspect]
     Dosage: 40 MG, UNK
  11. FENTANYL [Suspect]
     Dosage: 0.2 MG, INTERMITTENT
  12. SUGAMMADEX [Concomitant]
     Dosage: 100 MG, UNK
  13. HEPARIN [Concomitant]
     Dosage: 500-700 U/H
     Route: 042

REACTIONS (1)
  - POSTERIOR REVERSIBLE ENCEPHALOPATHY SYNDROME [None]
